FAERS Safety Report 8127846-0 (Version None)
Quarter: 2012Q1

REPORT INFORMATION
  Report Type: 
  Country: None (occurrence: None)
  Receive Date: 20120210
  Receipt Date: 20110815
  Transmission Date: 20120608
  Serious: No
  Sender: FDA-Public Use
  Company Number: US-GLAXOSMITHKLINE-A0941102A

PATIENT
  Age: 80 Year
  Sex: Male

DRUGS (3)
  1. PAROXETINE [Suspect]
     Indication: DEPRESSION
     Dosage: 10MG PER DAY
     Route: 048
     Dates: start: 20110701
  2. MULTI-VITAMIN [Concomitant]
  3. CALCIUM [Concomitant]

REACTIONS (8)
  - DIZZINESS [None]
  - CONSTIPATION [None]
  - DRUG INEFFECTIVE [None]
  - ASTHENIA [None]
  - DRY MOUTH [None]
  - SOMNOLENCE [None]
  - TREMOR [None]
  - DECREASED APPETITE [None]
